FAERS Safety Report 16255189 (Version 1)
Quarter: 2019Q2

REPORT INFORMATION
  Report Type: Spontaneous
  Country: US (occurrence: US)
  Receive Date: 20190326
  Receipt Date: 20190326
  Transmission Date: 20190711
  Serious: Yes (Other)
  Sender: FDA-Public Use
  Company Number: None

PATIENT
  Age: 70 Year
  Sex: Female
  Weight: 86.18 kg

DRUGS (8)
  1. ADVIL [Concomitant]
     Active Substance: IBUPROFEN
  2. COPAXONE [Concomitant]
     Active Substance: GLATIRAMER ACETATE
  3. VIT D [Concomitant]
     Active Substance: VITAMIN D NOS
  4. NORCO [Concomitant]
     Active Substance: ACETAMINOPHEN\HYDROCODONE BITARTRATE
  5. WELLBUTRIN [Concomitant]
     Active Substance: BUPROPION HYDROCHLORIDE
  6. BIOFREEZE [Concomitant]
     Active Substance: MENTHOL
  7. ATORVASTATIN 20MG TAB [Suspect]
     Active Substance: ATORVASTATIN
     Indication: HYPERLIPIDAEMIA
     Route: 048
     Dates: start: 201704, end: 20190306
  8. JOBST STOCKINGS [Concomitant]

REACTIONS (8)
  - Peripheral swelling [None]
  - Musculoskeletal disorder [None]
  - Arthralgia [None]
  - Pain in extremity [None]
  - Weight bearing difficulty [None]
  - Joint swelling [None]
  - Limb discomfort [None]
  - Contusion [None]

NARRATIVE: CASE EVENT DATE: 20190224
